FAERS Safety Report 5050673-8 (Version None)
Quarter: 2006Q3

REPORT INFORMATION
  Report Type: 
  Country: None (occurrence: None)
  Receive Date: 20060710
  Receipt Date: 20060622
  Transmission Date: 20061208
  Serious: Yes (Life-Threatening, Hospitalization)
  Sender: FDA-Public Use
  Company Number: VER_0016_2006

PATIENT
  Sex: Female

DRUGS (1)
  1. TWINJECT [Suspect]
     Indication: ANAPHYLACTIC REACTION
     Dosage: 1 U ONCE SC
     Route: 058
     Dates: start: 20060619, end: 20060619

REACTIONS (2)
  - DEVICE FAILURE [None]
  - PHARMACEUTICAL PRODUCT COMPLAINT [None]
